FAERS Safety Report 16597615 (Version 1)
Quarter: 2019Q3

REPORT INFORMATION
  Report Type: Spontaneous
  Country: US (occurrence: US)
  Receive Date: 20190717
  Receipt Date: 20190717
  Transmission Date: 20191004
  Serious: Yes (Death)
  Sender: FDA-Public Use
  Company Number: None

PATIENT
  Age: 63 Year
  Sex: Female
  Weight: 98.2 kg

DRUGS (1)
  1. FECAL MICROBIOTA TRANSPLANT FROM OPENBIOME [Suspect]
     Active Substance: FECAL MICROBIOTA
     Indication: CLOSTRIDIUM DIFFICILE INFECTION
     Dosage: ?          OTHER FREQUENCY:ONCE;OTHER ROUTE:COLONOSCOPY?
     Dates: start: 20190701, end: 20190701

REACTIONS (7)
  - Acidosis [None]
  - Ventricular tachycardia [None]
  - Blood culture positive [None]
  - Septic shock [None]
  - Atrial fibrillation [None]
  - Refusal of treatment by patient [None]
  - Enterobacter infection [None]

NARRATIVE: CASE EVENT DATE: 20190703
